FAERS Safety Report 12528637 (Version 1)
Quarter: 2016Q3

REPORT INFORMATION
  Report Type: Not Available
  Country: FR (occurrence: FR)
  Receive Date: 20160705
  Receipt Date: 20160705
  Transmission Date: 20161109
  Serious: Yes (Death, Other)
  Sender: FDA-Public Use
  Company Number: FR-PURDUE PHARMA-GBR-2016-0037605

PATIENT
  Sex: Female

DRUGS (7)
  1. OXYCONTIN [Suspect]
     Active Substance: OXYCODONE HYDROCHLORIDE
     Indication: GAIT DISTURBANCE
     Dosage: UNK
     Route: 048
     Dates: start: 20160604, end: 20160607
  2. CLOXACILLIN [Concomitant]
     Active Substance: CLOXACILLIN
     Indication: INTERVERTEBRAL DISCITIS
  3. RIFADINE                           /00146901/ [Suspect]
     Active Substance: RIFAMPIN
     Dosage: 700 MG, BID
     Route: 042
     Dates: start: 20160604, end: 20160608
  4. OXYNORM [Suspect]
     Active Substance: OXYCODONE HYDROCHLORIDE
     Indication: GAIT DISTURBANCE
     Dosage: UNK
     Route: 048
     Dates: start: 20160604, end: 20160607
  5. RIFADINE                           /00146901/ [Suspect]
     Active Substance: RIFAMPIN
     Indication: INTERVERTEBRAL DISCITIS
     Dosage: 600 MG, BID
     Route: 042
     Dates: start: 20160608, end: 20160608
  6. LACTULOSE. [Concomitant]
     Active Substance: LACTULOSE
     Dosage: UNK
     Dates: start: 20160605
  7. LOVENOX [Concomitant]
     Active Substance: ENOXAPARIN SODIUM
     Indication: THROMBOSIS PROPHYLAXIS
     Dosage: UNK
     Dates: start: 20160603

REACTIONS (3)
  - Hepatic failure [Fatal]
  - Condition aggravated [Recovering/Resolving]
  - Hyperbilirubinaemia [Recovering/Resolving]

NARRATIVE: CASE EVENT DATE: 2016
